FAERS Safety Report 9613261 (Version 1)
Quarter: 2013Q4

REPORT INFORMATION
  Report Type: Spontaneous
  Country: GR (occurrence: GR)
  Receive Date: 20131010
  Receipt Date: 20131010
  Transmission Date: 20140711
  Serious: Yes (Other)
  Sender: FDA-Public Use
  Company Number: GR-ROCHE-1287318

PATIENT
  Sex: Female

DRUGS (4)
  1. LUCENTIS [Suspect]
     Indication: MACULAR OEDEMA
     Route: 050
  2. LUCENTIS [Suspect]
     Indication: OFF LABEL USE
  3. AVASTIN [Suspect]
     Indication: MACULAR OEDEMA
     Route: 065
  4. AVASTIN [Suspect]
     Indication: OFF LABEL USE

REACTIONS (1)
  - Herpes zoster [Unknown]
